FAERS Safety Report 7353047-X (Version None)
Quarter: 2011Q1

REPORT INFORMATION
  Report Type: 
  Country: None (occurrence: None)
  Receive Date: 20110315
  Receipt Date: 20110307
  Transmission Date: 20110831
  Serious: Yes (Other)
  Sender: FDA-Public Use
  Company Number: B0699102A

PATIENT
  Sex: Female

DRUGS (5)
  1. AMBROXOL HYDROCHLORIDE [Concomitant]
     Route: 048
     Dates: start: 20110111
  2. SULTANOL [Suspect]
     Indication: PRODUCT USED FOR UNKNOWN INDICATION
     Route: 055
     Dates: start: 20110104
  3. HOKUNALIN [Concomitant]
     Route: 065
     Dates: start: 20110111
  4. SYMBICORT [Concomitant]
     Route: 055
  5. HUSCODE [Concomitant]
     Route: 048

REACTIONS (2)
  - DRUG EXPOSURE DURING PREGNANCY [None]
  - ANGINA PECTORIS [None]
